FAERS Safety Report 4597031-8 (Version None)
Quarter: 2005Q1

REPORT INFORMATION
  Report Type: 
  Country: None (occurrence: None)
  Receive Date: 20050301
  Receipt Date: 20050222
  Transmission Date: 20050727
  Serious: Yes (Hospitalization, Other)
  Sender: FDA-Public Use
  Company Number: CHPA2003US02317

PATIENT
  Age: 35 Year
  Sex: Female

DRUGS (5)
  1. EX LAX LAXATIVE(NCH) [Suspect]
     Indication: WEIGHT CONTROL
     Dosage: SEE IMAGE
     Route: 048
     Dates: start: 19880101
  2. DULCOLAX [Suspect]
     Indication: WEIGHT CONTROL
     Dosage: ORAL
     Route: 048
     Dates: start: 19880101
  3. FEEN-A-MINT (PHENOLPHTHALEIN) [Suspect]
     Indication: WEIGHT CONTROL
     Dosage: ORAL
     Route: 048
     Dates: start: 19880101
  4. CORRECTOL [Suspect]
     Indication: WEIGHT CONTROL
     Dosage: ORAL
     Route: 048
     Dates: start: 19880101
  5. LAXATIVE [Suspect]
     Dosage: 1 TAB,  QD

REACTIONS (17)
  - ABDOMINAL PAIN [None]
  - CONSTIPATION [None]
  - DRUG DEPENDENCE [None]
  - DRUG INEFFECTIVE [None]
  - ECONOMIC PROBLEM [None]
  - EMOTIONAL DISTRESS [None]
  - HAEMORRHOIDAL HAEMORRHAGE [None]
  - HAEMORRHOIDS [None]
  - INJURY [None]
  - INTESTINAL MASS [None]
  - OFF LABEL USE [None]
  - OVARIAN CYST [None]
  - PROCTITIS [None]
  - RECTAL HAEMORRHAGE [None]
  - SELF-MEDICATION [None]
  - SWELLING [None]
  - THROMBOSIS [None]
